FAERS Safety Report 7340928-6 (Version None)
Quarter: 2011Q1

REPORT INFORMATION
  Report Type: 
  Country: None (occurrence: None)
  Receive Date: 20110309
  Receipt Date: 20100729
  Transmission Date: 20110831
  Serious: No
  Sender: FDA-Public Use
  Company Number: US-ABBOTT-10P-163-0661380-00

PATIENT
  Sex: Female
  Weight: 61.744 kg

DRUGS (2)
  1. LUPRON DEPOT [Suspect]
     Indication: ANAEMIA
  2. LUPRON DEPOT [Suspect]
     Indication: MENORRHAGIA
     Dates: start: 20100519

REACTIONS (4)
  - ILL-DEFINED DISORDER [None]
  - ANAEMIA [None]
  - POLYP [None]
  - VAGINAL HAEMORRHAGE [None]
